FAERS Safety Report 8576464-9 (Version None)
Quarter: 2012Q3

REPORT INFORMATION
  Report Type: 
  Country: None (occurrence: None)
  Receive Date: 20120725
  Receipt Date: 20120711
  Transmission Date: 20120928
  Serious: Yes (Life-Threatening, Other)
  Sender: FDA-Public Use
  Company Number: FK201201966

PATIENT
  Age: 26 Year
  Sex: Male

DRUGS (6)
  1. VALPROATE SODIUM [Suspect]
     Indication: EPILEPSY
     Dosage: 500 MG, TWICE DAILY
  2. LEVETIRACETAM [Concomitant]
  3. ACETAMINOPHEN [Concomitant]
  4. BACLOFEN [Concomitant]
  5. CLEMASTINE FUMARATE [Concomitant]
  6. PREDNISONE TAB [Concomitant]

REACTIONS (2)
  - DRUG RASH WITH EOSINOPHILIA AND SYSTEMIC SYMPTOMS [None]
  - ACUTE HEPATIC FAILURE [None]
